FAERS Safety Report 10743409 (Version 1)
Quarter: 2015Q1

REPORT INFORMATION
  Report Type: Report from Study
  Country: US (occurrence: US)
  Receive Date: 20150128
  Receipt Date: 20150128
  Transmission Date: 20150721
  Serious: Yes (Hospitalization, Other)
  Sender: FDA-Public Use
  Company Number: US-ROCHE-1523563

PATIENT
  Age: 39 Year
  Sex: Male
  Weight: 103.4 kg

DRUGS (11)
  1. IPILIMUMAB [Suspect]
     Active Substance: IPILIMUMAB
     Dosage: DOSE 3MG/KG, LAST DOSE ADMINISTERED, 18/NOV/2014, 09/DEC/2014
     Route: 042
     Dates: end: 20141209
  2. SIMVASTATIN. [Concomitant]
     Active Substance: SIMVASTATIN
  3. DOCUSATE SODIUM. [Concomitant]
     Active Substance: DOCUSATE SODIUM
  4. AUGMENTIN [Concomitant]
     Active Substance: AMOXICILLIN\CLAVULANATE POTASSIUM
  5. BEVACIZUMAB [Suspect]
     Active Substance: BEVACIZUMAB
     Dosage: DOSE 15MG/KG, LAST ADMINISTERED DOSE 18/NOV/2014,  09/DEC/2014
     Route: 042
     Dates: end: 20141209
  6. ONDANSETRON [Concomitant]
     Active Substance: ONDANSETRON
  7. BEVACIZUMAB [Suspect]
     Active Substance: BEVACIZUMAB
     Indication: MALIGNANT MELANOMA
     Dosage: DOSE 15MG/KG, LAST ADMINISTERED DOSE 09/DEC/2014
     Route: 042
     Dates: start: 20141028
  8. IPILIMUMAB [Suspect]
     Active Substance: IPILIMUMAB
     Indication: MALIGNANT MELANOMA
     Dosage: DOSE 3MG/KG, LAST DOSE ADMINISTERED 09/DEC/2014
     Route: 042
     Dates: start: 20141028
  9. SODIUM CHLORIDE. [Concomitant]
     Active Substance: SODIUM CHLORIDE
  10. METFORMIN [Concomitant]
     Active Substance: METFORMIN HYDROCHLORIDE
     Route: 065
  11. LISINOPRIL. [Concomitant]
     Active Substance: LISINOPRIL

REACTIONS (3)
  - Encephalopathy [Recovered/Resolved]
  - Vomiting [Recovered/Resolved]
  - Rash maculo-papular [Recovered/Resolved]

NARRATIVE: CASE EVENT DATE: 20141202
